FAERS Safety Report 7299077-8 (Version None)
Quarter: 2011Q1

REPORT INFORMATION
  Report Type: 
  Country: None (occurrence: None)
  Receive Date: 20110217
  Receipt Date: 20110217
  Transmission Date: 20110831
  Serious: Yes (Other)
  Sender: FDA-Public Use
  Company Number: None

PATIENT
  Age: 62 Year
  Sex: Female
  Weight: 81.6475 kg

DRUGS (1)
  1. TRIAD ALCOHOL PREPARATION PADS 70% ISOPROPYL ALCOHOL TRIAD GROUP, INC. [Suspect]
     Indication: VITAMIN B12
     Dosage: ONCE A WEEK FOR 4 WEEKS THEN ONCE A MONTH
     Dates: start: 20100831, end: 20110123

REACTIONS (3)
  - ARTHRALGIA [None]
  - INJECTION SITE PAIN [None]
  - MUSCULOSKELETAL STIFFNESS [None]
